FAERS Safety Report 7127564-1 (Version None)
Quarter: 2010Q4

REPORT INFORMATION
  Report Type: 
  Country: None (occurrence: None)
  Receive Date: 20101129
  Receipt Date: 20100709
  Transmission Date: 20110411
  Serious: No
  Sender: FDA-Public Use
  Company Number: US-PFIZER INC-2010086011

PATIENT
  Sex: Male
  Weight: 72 kg

DRUGS (4)
  1. VIAGRA [Suspect]
     Indication: ERECTILE DYSFUNCTION
     Dosage: 50 MG, UNK
     Route: 048
     Dates: start: 20040101
  2. TOPROL-XL [Concomitant]
     Indication: HYPERTENSION
     Dosage: 20 MG, DAILY
  3. LIPITOR [Concomitant]
     Indication: HYPERTENSION
     Dosage: 10 MG, DAILY
  4. LIPITOR [Concomitant]
     Indication: BLOOD CHOLESTEROL ABNORMAL

REACTIONS (3)
  - DRUG INEFFECTIVE [None]
  - DYSPEPSIA [None]
  - FLUSHING [None]
